FAERS Safety Report 24681284 (Version 1)
Quarter: 2024Q4

REPORT INFORMATION
  Report Type: Spontaneous
  Country: SI (occurrence: SI)
  Receive Date: 20241129
  Receipt Date: 20241129
  Transmission Date: 20250114
  Serious: Yes (Other)
  Sender: ALEXION PHARMACEUTICALS
  Company Number: SI-MYLANLABS-2024M1102311

PATIENT
  Age: 72 Year

DRUGS (14)
  1. DAPAGLIFLOZIN [Suspect]
     Active Substance: DAPAGLIFLOZIN
     Indication: Product used for unknown indication
     Dosage: UNK
  2. DAPAGLIFLOZIN [Suspect]
     Active Substance: DAPAGLIFLOZIN
     Dosage: UNK
  3. DAPAGLIFLOZIN [Suspect]
     Active Substance: DAPAGLIFLOZIN
     Dosage: UNK
  4. DAPAGLIFLOZIN [Suspect]
     Active Substance: DAPAGLIFLOZIN
     Dosage: UNK
  5. BISOPROLOL [Concomitant]
     Active Substance: BISOPROLOL
     Dosage: UNK
  6. SPIRONOLACTONE [Concomitant]
     Active Substance: SPIRONOLACTONE
     Dosage: UNK
  7. CYCLOPHOSPHAMIDE [Concomitant]
     Active Substance: CYCLOPHOSPHAMIDE
     Dosage: UNK
  8. PACLITAXEL [Concomitant]
     Active Substance: PACLITAXEL
     Dosage: UNK
  9. TRASTUZUMAB [Concomitant]
     Active Substance: TRASTUZUMAB
     Dosage: UNK
  10. PERTUZUMAB [Concomitant]
     Active Substance: PERTUZUMAB
     Dosage: UNK
  11. FUROSEMIDE [Concomitant]
     Active Substance: FUROSEMIDE
     Dosage: UNK
  12. LEVOSIMENDAN [Concomitant]
     Active Substance: LEVOSIMENDAN
     Dosage: UNK
  13. APIXABAN [Concomitant]
     Active Substance: APIXABAN
     Dosage: UNK
  14. EXEMESTANE [Concomitant]
     Active Substance: EXEMESTANE
     Dosage: UNK

REACTIONS (3)
  - Cachexia [Recovered/Resolved]
  - Decreased appetite [Unknown]
  - Dizziness [Unknown]
